FAERS Safety Report 8524140-0 (Version None)
Quarter: 2012Q3

REPORT INFORMATION
  Report Type: 
  Country: None (occurrence: None)
  Receive Date: 20120720
  Receipt Date: 20110524
  Transmission Date: 20120928
  Serious: Yes (Death, Other)
  Sender: FDA-Public Use
  Company Number: US-BAYER-200825905NA

PATIENT
  Age: 79 Year
  Sex: Female
  Weight: 63.636 kg

DRUGS (38)
  1. OMNISCAN [Suspect]
     Dosage: DOSE REPORTED AS EIGHT 20ML VIALS (160ML)
     Dates: start: 20050920, end: 20050920
  2. MULTIHANCE [Suspect]
     Indication: NUCLEAR MAGNETIC RESONANCE IMAGING ABDOMINAL
  3. PROHANCE [Suspect]
     Indication: NUCLEAR MAGNETIC RESONANCE IMAGING ABDOMINAL
  4. EPOGEN [Concomitant]
     Dosage: WITH DIALYSIS AS PER DIALYSIS PROTOCOL (8000 UNITS TIW AS OF MAR 2001)
  5. IMDUR [Concomitant]
     Dosage: UNK
  6. MULTIHANCE [Suspect]
     Indication: ANGIOGRAM
  7. GADOLINIUM ZEOLITE [Suspect]
     Indication: NUCLEAR MAGNETIC RESONANCE IMAGING ABDOMINAL
     Dates: start: 20010425, end: 20010425
  8. GADOLINIUM ZEOLITE [Suspect]
     Dates: start: 20050816, end: 20050816
  9. FOLIC ACID [Concomitant]
     Dosage: UNK
  10. POTASSIUM CHLORIDE [Concomitant]
     Dosage: UNK
  11. OMNISCAN [Suspect]
     Indication: ANGIOGRAM
     Dosage: ROUTE REPORTED AS ^FIRST VIA DISTAL PORT AND THEN VIA THE PROXIMAL PORT^
     Route: 050
     Dates: start: 20031204, end: 20031204
  12. LOVASTATIN [Concomitant]
     Dosage: UNK
  13. OPTIMARK [Suspect]
     Indication: NUCLEAR MAGNETIC RESONANCE IMAGING ABDOMINAL
     Dates: start: 20050816, end: 20050816
  14. OPTIMARK [Suspect]
     Indication: ANGIOGRAM
  15. GADOLINIUM ZEOLITE [Suspect]
     Dates: start: 20010503, end: 20010503
  16. DILTIAZEM [Concomitant]
     Dosage: UNK
  17. FUROSEMIDE [Concomitant]
     Dosage: UNK
  18. MAGNEVIST [Suspect]
     Indication: NUCLEAR MAGNETIC RESONANCE IMAGING ABDOMINAL
     Dates: start: 20010425, end: 20010425
  19. MULTIHANCE [Suspect]
     Indication: NUCLEAR MAGNETIC RESONANCE IMAGING
  20. GADOLINIUM ZEOLITE [Suspect]
     Indication: NUCLEAR MAGNETIC RESONANCE IMAGING BRAIN
     Dates: start: 20010305, end: 20010305
  21. NEPHROVITE [VIT C,VIT H,B5,B12,B9,B3,B6,B2,B1 HCL] [Concomitant]
     Dosage: UNK
  22. RENAGEL [Concomitant]
     Dosage: START DATE UNKNOWN; NOTED AS OF OCT 2005
  23. OMNISCAN [Suspect]
     Indication: NUCLEAR MAGNETIC RESONANCE IMAGING ABDOMINAL
     Dates: start: 20030523, end: 20030523
  24. PROHANCE [Suspect]
     Indication: ANGIOGRAM
  25. POTASSIUM CHLORIDE [Concomitant]
     Dosage: DOSE: 20 MEQ/L
  26. AMIODARONE HCL [Concomitant]
     Dosage: UNK
  27. HYDRALAZINE HCL [Concomitant]
     Dosage: UNK
  28. MAGNEVIST [Suspect]
     Indication: ANGIOGRAM
     Dates: start: 20010503, end: 20010503
  29. MAGNEVIST [Suspect]
     Indication: NUCLEAR MAGNETIC RESONANCE IMAGING BRAIN
  30. OPTIMARK [Suspect]
     Indication: NUCLEAR MAGNETIC RESONANCE IMAGING
  31. ASPIRIN [Concomitant]
  32. NIFEREX [Concomitant]
  33. COREG [Concomitant]
     Dosage: 6.25 MG, BID
     Route: 048
  34. PLENDIL [Concomitant]
     Dosage: UNK
  35. VENOFER [Concomitant]
     Dosage: WITH DIALYSIS AS PER DIALYSIS PROTOCOL
  36. ZEMPLAR [Concomitant]
     Dosage: WITH DIALYSIS AS PER DIALYSIS PROTOCOL
  37. OMNISCAN [Suspect]
     Indication: NUCLEAR MAGNETIC RESONANCE IMAGING
     Dosage: DOSE REPORTED AS ^11^ 20ML VIALS
     Dates: start: 20050901, end: 20050901
  38. PROHANCE [Suspect]
     Indication: NUCLEAR MAGNETIC RESONANCE IMAGING

REACTIONS (20)
  - JOINT STIFFNESS [None]
  - SKIN WRINKLING [None]
  - DRY SKIN [None]
  - EMOTIONAL DISTRESS [None]
  - OEDEMA [None]
  - INJURY [None]
  - MUSCLE RIGIDITY [None]
  - ANXIETY [None]
  - NEPHROGENIC SYSTEMIC FIBROSIS [None]
  - PAIN [None]
  - SKIN TIGHTNESS [None]
  - SKIN INDURATION [None]
  - ERYTHEMA [None]
  - JOINT RANGE OF MOTION DECREASED [None]
  - FATIGUE [None]
  - ARTHRALGIA [None]
  - PRURITUS [None]
  - SKIN HYPERTROPHY [None]
  - EXTREMITY CONTRACTURE [None]
  - MUSCULOSKELETAL STIFFNESS [None]
